FAERS Safety Report 4984445-7 (Version None)
Quarter: 2006Q2

REPORT INFORMATION
  Report Type: 
  Country: None (occurrence: None)
  Receive Date: 20060427
  Receipt Date: 20060426
  Transmission Date: 20061013
  Serious: Yes (Hospitalization)
  Sender: FDA-Public Use
  Company Number: US-GLAXOSMITHKLINE-A0603381A

PATIENT
  Age: 62 Year
  Sex: Female

DRUGS (9)
  1. WELLBUTRIN XL [Suspect]
     Indication: EX-SMOKER
     Dosage: 300MG PER DAY
     Route: 048
  2. CLONOPIN [Concomitant]
  3. NEBULIZER [Concomitant]
  4. ZYRTEC [Concomitant]
  5. ADVAIR DISKUS 100/50 [Concomitant]
  6. MAXAIR [Concomitant]
  7. SPIRIVA [Concomitant]
  8. ADDERALL 10 [Concomitant]
  9. SINGULAIR [Concomitant]

REACTIONS (6)
  - CONFUSIONAL STATE [None]
  - DRUG INEFFECTIVE [None]
  - HEADACHE [None]
  - INFLUENZA LIKE ILLNESS [None]
  - IRRITABILITY [None]
  - NICOTINE DEPENDENCE [None]
